FAERS Safety Report 4831975-4 (Version None)
Quarter: 2005Q4

REPORT INFORMATION
  Report Type: 
  Country: None (occurrence: None)
  Receive Date: 20051118
  Receipt Date: 20051013
  Transmission Date: 20060501
  Serious: Yes (Hospitalization, Other)
  Sender: FDA-Public Use
  Company Number: AU-NOVOPROD-247764

PATIENT
  Age: 58 Year
  Sex: Male

DRUGS (3)
  1. NOVOSEVEN [Suspect]
     Indication: AORTIC SURGERY
     Dosage: 8.4 MG, SINGLE
     Dates: start: 20040730, end: 20040730
  2. TRASYLOL [Concomitant]
  3. ASPIRIN [Concomitant]

REACTIONS (2)
  - GRAFT THROMBOSIS [None]
  - VASCULAR GRAFT COMPLICATION [None]
